FAERS Safety Report 24387163 (Version 1)
Quarter: 2024Q4

REPORT INFORMATION
  Report Type: Spontaneous
  Country: US (occurrence: US)
  Receive Date: 20241002
  Receipt Date: 20241002
  Transmission Date: 20250115
  Serious: No
  Sender: QOL
  Company Number: US-QOL Medical, LLC-2162311

PATIENT
  Age: 5 Year
  Sex: Male
  Weight: 15.909 kg

DRUGS (6)
  1. SUCRAID [Suspect]
     Active Substance: SACROSIDASE
     Dates: start: 202301
  2. OMEPRAZOLE [Concomitant]
     Active Substance: OMEPRAZOLE
  3. zinc menthol lozenges [Concomitant]
  4. vitamin d3 chewable [Concomitant]
  5. PROBIOTICS NOS [Concomitant]
     Active Substance: PROBIOTICS NOS
  6. VITAMINS [Concomitant]
     Active Substance: VITAMINS

REACTIONS (4)
  - Erythema [Not Recovered/Not Resolved]
  - Dysgeusia [Recovered/Resolved]
  - Abdominal distension [Not Recovered/Not Resolved]
  - Abdominal pain [Not Recovered/Not Resolved]

NARRATIVE: CASE EVENT DATE: 20230101
